FAERS Safety Report 5284661-3 (Version None)
Quarter: 2007Q2

REPORT INFORMATION
  Report Type: 
  Country: None (occurrence: None)
  Receive Date: 20070403
  Receipt Date: 20070323
  Transmission Date: 20071010
  Serious: Yes (Other)
  Sender: FDA-Public Use
  Company Number: GB-ROCHE-488513

PATIENT
  Age: 61 Year
  Sex: Female
  Weight: 77 kg

DRUGS (2)
  1. XENICAL [Suspect]
     Indication: OBESITY
     Route: 048
     Dates: start: 20070228
  2. VAGIFEM [Concomitant]

REACTIONS (2)
  - RECTAL HAEMORRHAGE [None]
  - VAGINAL HAEMORRHAGE [None]
